FAERS Safety Report 7007355-2 (Version None)
Quarter: 2010Q3

REPORT INFORMATION
  Report Type: 
  Country: None (occurrence: None)
  Receive Date: 20100922
  Receipt Date: 20100915
  Transmission Date: 20110219
  Serious: Yes (Hospitalization)
  Sender: FDA-Public Use
  Company Number: US-SANOFI-AVENTIS-2010SA056057

PATIENT
  Age: 59 Year
  Sex: Female

DRUGS (6)
  1. MULTAQ [Suspect]
     Route: 048
     Dates: start: 20091201, end: 20100901
  2. SIMVASTATIN [Concomitant]
  3. DILTIAZEM [Concomitant]
  4. FUROSEMIDE [Concomitant]
  5. RAMIPRIL [Concomitant]
  6. SPIRONOLACTONE [Concomitant]

REACTIONS (4)
  - CARDIAC ARREST [None]
  - ELECTROCARDIOGRAM QT PROLONGED [None]
  - HYPOXIC-ISCHAEMIC ENCEPHALOPATHY [None]
  - VENTRICULAR FIBRILLATION [None]
